FAERS Safety Report 20017083 (Version 5)
Quarter: 2024Q4

REPORT INFORMATION
  Report Type: Report from Study
  Country: KW (occurrence: KW)
  Receive Date: 20211030
  Receipt Date: 20241108
  Transmission Date: 20250114
  Serious: Yes (Hospitalization, Congenital Anomaly)
  Sender: NOVARTIS
  Company Number: KW-NOVARTISPH-NVSC2021KW244055

PATIENT
  Sex: Female
  Weight: 2.7 kg

DRUGS (1)
  1. GILENYA [Suspect]
     Active Substance: FINGOLIMOD HYDROCHLORIDE
     Indication: Foetal exposure during pregnancy
     Dosage: UNK (MATERNAL DOSE: 0.5 MG, QD)
     Route: 064

REACTIONS (6)
  - Ventricular septal defect [Recovered/Resolved]
  - Atrial septal defect [Unknown]
  - Metabolic acidosis [Unknown]
  - Jaundice neonatal [Unknown]
  - Premature baby [Unknown]
  - Foetal exposure during pregnancy [Unknown]
